FAERS Safety Report 6089219-4 (Version None)
Quarter: 2009Q1

REPORT INFORMATION
  Report Type: 
  Country: None (occurrence: None)
  Receive Date: 20090224
  Receipt Date: 20090217
  Transmission Date: 20090719
  Serious: Yes (Other)
  Sender: FDA-Public Use
  Company Number: US-PFIZER INC-2008078284

PATIENT
  Age: 30 Year
  Sex: Female

DRUGS (1)
  1. DILANTIN-125 [Suspect]
     Indication: CONVULSION

REACTIONS (3)
  - GRAND MAL CONVULSION [None]
  - LIVER DISORDER [None]
  - TOOTH LOSS [None]
